FAERS Safety Report 23796099 (Version 1)
Quarter: 2024Q2

REPORT INFORMATION
  Report Type: Spontaneous
  Country: CN (occurrence: CN)
  Receive Date: 20240429
  Receipt Date: 20240429
  Transmission Date: 20240716
  Serious: Yes (Other)
  Sender: FDA-Public Use
  Company Number: CN-ELI_LILLY_AND_COMPANY-CN202404014118

PATIENT
  Age: 50 Year
  Sex: Female

DRUGS (9)
  1. PEMETREXED [Suspect]
     Active Substance: PEMETREXED
     Indication: Lung adenocarcinoma
     Dosage: 800 MG/M2, AT DAY 1
     Route: 065
     Dates: start: 202004, end: 202006
  2. PEMETREXED [Suspect]
     Active Substance: PEMETREXED
     Dosage: 800 MG/M2, AT DAY 1
     Route: 065
     Dates: start: 202009, end: 202010
  3. PEMETREXED [Suspect]
     Active Substance: PEMETREXED
     Dosage: 800 MG/M2, AT DAY 1
     Route: 065
     Dates: start: 202010, end: 202309
  4. SINTILIMAB [Suspect]
     Active Substance: SINTILIMAB
     Indication: Lung adenocarcinoma
     Dosage: 200 MG, 3/W
     Route: 065
     Dates: start: 202004, end: 202006
  5. SINTILIMAB [Suspect]
     Active Substance: SINTILIMAB
     Dosage: 200 MG, AT DAY 0
     Route: 065
     Dates: start: 202009, end: 202010
  6. SINTILIMAB [Suspect]
     Active Substance: SINTILIMAB
     Dosage: 200 MG, AT DAY 0
     Route: 065
     Dates: start: 202010, end: 202309
  7. LOBAPLATIN [Suspect]
     Active Substance: LOBAPLATIN
     Indication: Lung adenocarcinoma
     Dosage: 50 MG, AT DAY 2
     Route: 065
     Dates: start: 202004, end: 202006
  8. LOBAPLATIN [Suspect]
     Active Substance: LOBAPLATIN
     Dosage: 50 MG, AT DAY 2
     Route: 065
     Dates: start: 202009, end: 202010
  9. CISPLATIN [Concomitant]
     Active Substance: CISPLATIN
     Indication: Lung adenocarcinoma
     Dosage: TOTAL OF 60 MG, CIRCULATION 20 MG AND RETAINED 600 MG
     Route: 065
     Dates: start: 202008, end: 202009

REACTIONS (5)
  - Malignant pleural effusion [Unknown]
  - Atelectasis [Recovered/Resolved]
  - Hydrothorax [Recovered/Resolved]
  - Treatment failure [Unknown]
  - Asthenia [Unknown]
